FAERS Safety Report 18663137 (Version 4)
Quarter: 2023Q1

REPORT INFORMATION
  Report Type: Report from Study
  Country: US (occurrence: US)
  Receive Date: 20201224
  Receipt Date: 20230203
  Transmission Date: 20230418
  Serious: Yes (Hospitalization, Other)
  Sender: FDA-Public Use
  Company Number: US-TAKEDA-US202013843

PATIENT
  Age: 20 Year
  Sex: Female

DRUGS (4)
  1. LANADELUMAB [Suspect]
     Active Substance: LANADELUMAB
     Indication: Immune system disorder
     Dosage: 300 MILLIGRAM, Q2WEEKS
     Route: 058
     Dates: start: 2020
  2. LANADELUMAB [Suspect]
     Active Substance: LANADELUMAB
     Indication: Genitourinary symptom
     Dosage: 300 MILLIGRAM, Q2WEEKS
     Route: 058
     Dates: start: 202002
  3. LANADELUMAB [Suspect]
     Active Substance: LANADELUMAB
     Indication: Rheumatoid arthritis
     Dosage: 300 MILLIGRAM, Q2WEEKS
     Route: 058
     Dates: start: 20200204
  4. LANADELUMAB [Suspect]
     Active Substance: LANADELUMAB
     Dosage: 300 MILLIGRAM, Q2WEEKS
     Route: 058
     Dates: start: 20200227

REACTIONS (5)
  - COVID-19 pneumonia [Unknown]
  - Gastroenteritis viral [Unknown]
  - Weight decreased [Unknown]
  - Weight increased [Unknown]
  - Product dose omission in error [Unknown]

NARRATIVE: CASE EVENT DATE: 20201206
